FAERS Safety Report 10467689 (Version 1)
Quarter: 2014Q3

REPORT INFORMATION
  Report Type: Spontaneous
  Country: FR (occurrence: FR)
  Receive Date: 20140922
  Receipt Date: 20140922
  Transmission Date: 20150326
  Serious: Yes (Other)
  Sender: FDA-Public Use
  Company Number: FR-GLAXOSMITHKLINE-B1035092A

PATIENT
  Age: 47 Year
  Sex: Female

DRUGS (1)
  1. ZINNAT INJECTABLE [Suspect]
     Active Substance: CEFUROXIME SODIUM
     Indication: PROPHYLAXIS
     Route: 042
     Dates: start: 201403, end: 201403

REACTIONS (4)
  - Urticaria [Recovered/Resolved]
  - Pruritus [Recovered/Resolved]
  - Type I hypersensitivity [Recovered/Resolved]
  - Malaise [Recovered/Resolved]

NARRATIVE: CASE EVENT DATE: 201403
